FAERS Safety Report 8312673-1 (Version None)
Quarter: 2012Q2

REPORT INFORMATION
  Report Type: 
  Country: None (occurrence: None)
  Receive Date: 20120426
  Receipt Date: 20120414
  Transmission Date: 20120825
  Serious: Yes (Death, Hospitalization, Other)
  Sender: FDA-Public Use
  Company Number: NL-PAR PHARMACEUTICAL, INC-2012SCPR004328

PATIENT

DRUGS (10)
  1. CARBASALATE CALCIUM [Concomitant]
     Indication: PRODUCT USED FOR UNKNOWN INDICATION
     Dosage: 300 MG, (LOADING DOSE)
     Route: 065
  2. NADROPARIN 7600 ANTI-XA [Concomitant]
     Indication: PRODUCT USED FOR UNKNOWN INDICATION
     Dosage: UNK, TWICE DAILY
     Route: 065
  3. CARBASALATE CALCIUM [Concomitant]
     Dosage: 80 MG, ONCE DAILY (MAINTENANCE DOSE)
     Route: 065
  4. CLOPIDOGREL [Concomitant]
     Indication: PRODUCT USED FOR UNKNOWN INDICATION
     Dosage: 300 MG, SINGLE (LOADING DOSE)
     Route: 065
  5. SIMVASTATIN [Concomitant]
     Indication: PRODUCT USED FOR UNKNOWN INDICATION
     Dosage: 40 MG, ONCE DAILY
     Route: 065
  6. ERLOTINIB HYDROCHLORIDE [Interacting]
     Indication: NON-SMALL CELL LUNG CANCER
     Dosage: 150 MG, ONCE DAILY
     Route: 065
  7. AMOXICILLIN AND CLAVULANATE POTASSIUM [Concomitant]
     Indication: BRONCHOPNEUMONIA
     Dosage: 1 DF, 4 TIMES DAILY
     Route: 042
  8. CIPROFLOXACIN EXTENDED RELEASE [Suspect]
     Indication: BRONCHOPNEUMONIA
     Dosage: 500 MG, TWO TIMES DAILY
     Route: 065
  9. CLOPIDOGREL [Concomitant]
     Dosage: 75 MG, ONCE DAILY (MAINTENANCE DOSE)
     Route: 065
  10. METOPROLOL SUCCINATE [Concomitant]
     Indication: PRODUCT USED FOR UNKNOWN INDICATION
     Dosage: 50 MG, ONCE DAILY
     Route: 065

REACTIONS (5)
  - INTERSTITIAL LUNG DISEASE [None]
  - CARDIAC FAILURE [None]
  - RESPIRATORY FAILURE [None]
  - DRUG INTERACTION [None]
  - DEATH [None]
